FAERS Safety Report 5973110-5 (Version None)
Quarter: 2008Q4

REPORT INFORMATION
  Report Type: 
  Country: None (occurrence: None)
  Receive Date: 20081201
  Receipt Date: 20081118
  Transmission Date: 20090506
  Serious: Yes (Hospitalization)
  Sender: FDA-Public Use
  Company Number: US-ROCHE-598229

PATIENT
  Age: 50 Year
  Sex: Female

DRUGS (3)
  1. KLONOPIN [Suspect]
     Indication: MUSCLE TWITCHING
     Route: 065
     Dates: start: 20080401, end: 20080601
  2. NEXIUM [Concomitant]
  3. ATENOLOL [Concomitant]
     Indication: ATRIAL FIBRILLATION

REACTIONS (2)
  - CLOSTRIDIAL INFECTION [None]
  - EAR PAIN [None]
